FAERS Safety Report 8041495-4 (Version None)
Quarter: 2012Q1

REPORT INFORMATION
  Report Type: 
  Country: None (occurrence: None)
  Receive Date: 20120112
  Receipt Date: 20120109
  Transmission Date: 20120608
  Serious: Yes (Other)
  Sender: FDA-Public Use
  Company Number: US-PFIZER INC-2012006219

PATIENT

DRUGS (3)
  1. LIPITOR [Suspect]
     Dosage: UNK
  2. CARDIZEM [Suspect]
     Dosage: UNK
  3. ZETIA [Suspect]
     Dosage: UNK

REACTIONS (6)
  - DRUG INEFFECTIVE [None]
  - FIBROMYALGIA [None]
  - SURGERY [None]
  - MUSCLE SPASMS [None]
  - BLOOD PRESSURE INCREASED [None]
  - GASTRIC DISORDER [None]
